FAERS Safety Report 12460186 (Version 4)
Quarter: 2016Q2

REPORT INFORMATION
  Report Type: Spontaneous
  Country: US (occurrence: US)
  Receive Date: 20160613
  Receipt Date: 20160629
  Transmission Date: 20160815
  Serious: Yes (Other)
  Sender: FDA-Public Use
  Company Number: US-PFIZER INC-2016293388

PATIENT
  Age: 74 Year
  Sex: Male

DRUGS (3)
  1. SKELAXIN [Suspect]
     Active Substance: METAXALONE
     Indication: PAIN
     Dosage: 800 MG, 3X/DAY
  2. LIDOCAINE PATCH [Concomitant]
     Active Substance: LIDOCAINE
     Indication: MUSCULOSKELETAL DISCOMFORT
     Dosage: 5 %, UNK
  3. ZOLOFT [Concomitant]
     Active Substance: SERTRALINE HYDROCHLORIDE
     Indication: BIPOLAR DISORDER
     Dosage: 100 MG, UNK

REACTIONS (10)
  - Suicidal ideation [Unknown]
  - Gastrointestinal disorder [Unknown]
  - Joint dislocation [Unknown]
  - Disorientation [Unknown]
  - Abdominal discomfort [Unknown]
  - Balance disorder [Unknown]
  - Memory impairment [Unknown]
  - Musculoskeletal disorder [Unknown]
  - Upper limb fracture [Unknown]
  - Dysphagia [Unknown]
